FAERS Safety Report 5807834-7 (Version None)
Quarter: 2008Q3

REPORT INFORMATION
  Report Type: 
  Country: None (occurrence: None)
  Receive Date: 20080711
  Receipt Date: 20080122
  Transmission Date: 20090109
  Serious: No
  Sender: FDA-Public Use
  Company Number: US-BOEHRINGER INGELHEIM GMBH, GERMANY-2007-BP-16293BP

PATIENT
  Sex: Male

DRUGS (10)
  1. MIRAPEX [Suspect]
     Indication: PARKINSON'S DISEASE
     Dates: start: 20050201, end: 20050801
  2. MIRAPEX [Suspect]
     Dates: start: 20031101, end: 20050201
  3. MIRAPEX [Suspect]
     Dates: start: 20010601, end: 20031101
  4. ELDEPRYL [Concomitant]
     Indication: PARKINSON'S DISEASE
     Dates: start: 20030325
  5. ARTANE [Concomitant]
     Indication: PARKINSON'S DISEASE
     Dates: start: 20030325
  6. AMANTADINE HCL [Concomitant]
     Indication: PARKINSON'S DISEASE
     Dates: start: 20030325
  7. COENZYME Q10 [Concomitant]
     Indication: PARKINSON'S DISEASE
     Dates: start: 20030325
  8. POTASSIUM CHLORIDE [Concomitant]
     Dates: start: 20030325
  9. PERMAX [Concomitant]
     Dates: start: 20030325
  10. SOLU-MEDROL [Concomitant]
     Indication: MULTIPLE SCLEROSIS
     Dates: start: 19990827

REACTIONS (8)
  - ANXIETY [None]
  - COMPULSIONS [None]
  - DEPRESSION [None]
  - EMOTIONAL DISTRESS [None]
  - FEAR [None]
  - HYPERSEXUALITY [None]
  - PAIN [None]
  - PATHOLOGICAL GAMBLING [None]
